FAERS Safety Report 7570105-5 (Version None)
Quarter: 2011Q2

REPORT INFORMATION
  Report Type: 
  Country: None (occurrence: None)
  Receive Date: 20110620
  Receipt Date: 20110608
  Transmission Date: 20111010
  Serious: Yes (Hospitalization, Other)
  Sender: FDA-Public Use
  Company Number: 2009AC000457

PATIENT
  Age: 49 Year
  Sex: Female

DRUGS (78)
  1. DIGOXIN [Suspect]
     Indication: CARDIAC FAILURE CONGESTIVE
     Dosage: 0.25 MG, QD, PO
     Route: 048
     Dates: start: 20020725, end: 20031101
  2. AMOXICILLIN [Concomitant]
  3. PRESTIGE SMART [Concomitant]
  4. HYDROXYZINE [Concomitant]
  5. CIMETIDINE [Concomitant]
  6. SALSALATE [Concomitant]
  7. CLARINEX [Concomitant]
  8. SOMA [Concomitant]
  9. IPRATROPIUM BROMIDE [Concomitant]
  10. SPIRIVA [Concomitant]
  11. PRILOSEC [Concomitant]
  12. ALBUTEROL SULFATE AUTOHALER [Concomitant]
  13. MORPHINE [Concomitant]
  14. PROVENTIL [Concomitant]
  15. PRILOSEC [Concomitant]
  16. SPIRONOLACTONE [Concomitant]
  17. CLOPIDOGREL [Concomitant]
  18. DARVOCET [Concomitant]
  19. KEFLEX [Concomitant]
  20. LORCET-HD [Concomitant]
  21. ZITROMYCIN [Concomitant]
  22. DIGOXIN [Suspect]
     Indication: CARDIAC FAILURE CONGESTIVE
     Dosage: 0.125 MG, QD, PO
     Route: 048
     Dates: start: 20031120, end: 20080501
  23. LISINOPRIL [Concomitant]
  24. ZOLOFT [Concomitant]
  25. NASONEX [Concomitant]
  26. CARISOPRODOL [Concomitant]
  27. CAPTOPRIL [Concomitant]
  28. PAXIL [Concomitant]
  29. VALIUM [Concomitant]
  30. CARISOPRODOL [Concomitant]
  31. PROMETHAZINE [Concomitant]
  32. CYCLOBENZAPRINE [Concomitant]
  33. TRAMADOL HCL [Concomitant]
  34. DIAZEPAM [Concomitant]
  35. CARVEDILOL [Concomitant]
  36. FLONASE [Concomitant]
  37. ZAFRAN [Concomitant]
  38. ADVAIR DISKUS 100/50 [Concomitant]
  39. SPIRONOLACTONE [Concomitant]
  40. FUROSEMIDE [Concomitant]
  41. SERTRALINE HYDROCHLORIDE [Concomitant]
  42. ACETAMINOPHEN [Concomitant]
  43. TESSALON [Concomitant]
  44. SINGULAIR [Concomitant]
  45. SOLU-MEDROL [Concomitant]
  46. ULTRAM [Concomitant]
  47. TORADOL [Concomitant]
  48. FUROSEMIDE [Concomitant]
  49. COREG [Concomitant]
  50. VICODIN [Concomitant]
  51. ZOCOR [Concomitant]
  52. HYDROCODONE BITARTRATE [Concomitant]
  53. ROPINIROLE [Concomitant]
  54. TEMAZEPAM [Concomitant]
  55. SPIRIVA [Concomitant]
  56. PAXIL [Concomitant]
  57. DIAZEPAM [Concomitant]
  58. TEMAZEPAM [Concomitant]
  59. STADOL [Concomitant]
  60. ANAPROX [Concomitant]
  61. DIGOXIN [Suspect]
     Indication: CARDIAC FAILURE CONGESTIVE
     Dosage: 0.25 MG, QD, PO
     Route: 048
     Dates: start: 20080501, end: 20091101
  62. DIGOXIN [Suspect]
     Indication: CARDIAC FAILURE CONGESTIVE
     Dosage: 0.625 MG, QD, PO
     Route: 048
     Dates: start: 20030101, end: 20030101
  63. PROTONIX [Concomitant]
  64. NEXIUM [Concomitant]
  65. REQUIP [Concomitant]
  66. CODEINE [Concomitant]
  67. NASONEX [Concomitant]
  68. HYDROCODONE BITARTRATE [Concomitant]
  69. BEXTRA [Concomitant]
  70. HYDROCODONE BITARTRATE [Concomitant]
  71. LISINOPRIL [Concomitant]
  72. PROTONIX [Concomitant]
  73. SIMVASTATIN [Concomitant]
  74. ALDACTONE [Concomitant]
  75. LESCOL [Concomitant]
  76. XANAX [Concomitant]
  77. NORFLEX [Concomitant]
  78. DILAUDID [Concomitant]

REACTIONS (72)
  - NAUSEA [None]
  - DIZZINESS [None]
  - UNEVALUABLE EVENT [None]
  - CARDIAC FAILURE CONGESTIVE [None]
  - DYSPNOEA [None]
  - ASTHENIA [None]
  - SINUS TACHYCARDIA [None]
  - CORONARY ARTERY DISEASE [None]
  - CORONARY ARTERY STENOSIS [None]
  - MYOCARDIAL ISCHAEMIA [None]
  - MYOSITIS [None]
  - REFUSAL OF TREATMENT BY PATIENT [None]
  - PANIC ATTACK [None]
  - DRUG LEVEL FLUCTUATING [None]
  - TOXICITY TO VARIOUS AGENTS [None]
  - ATRIOVENTRICULAR BLOCK SECOND DEGREE [None]
  - COUGH [None]
  - LEFT VENTRICULAR DYSFUNCTION [None]
  - MALNUTRITION [None]
  - WALKING AID USER [None]
  - HEAD INJURY [None]
  - BURSITIS [None]
  - VOMITING [None]
  - FALL [None]
  - DIARRHOEA [None]
  - HYPOTENSION [None]
  - LEFT VENTRICULAR HYPERTROPHY [None]
  - ANXIETY [None]
  - TRICUSPID VALVE INCOMPETENCE [None]
  - MAJOR DEPRESSION [None]
  - DYSARTHRIA [None]
  - DEPRESSED LEVEL OF CONSCIOUSNESS [None]
  - LETHARGY [None]
  - MUSCULAR WEAKNESS [None]
  - TOXICOLOGIC TEST ABNORMAL [None]
  - INTERVERTEBRAL DISC PROTRUSION [None]
  - BRONCHIAL SECRETION RETENTION [None]
  - BRONCHITIS [None]
  - CARDIOMEGALY [None]
  - ANGINA PECTORIS [None]
  - SPEECH DISORDER [None]
  - MUSCLE STRAIN [None]
  - SOMNOLENCE [None]
  - ROAD TRAFFIC ACCIDENT [None]
  - CONTUSION [None]
  - PLEURAL EFFUSION [None]
  - MULTIPLE INJURIES [None]
  - ECONOMIC PROBLEM [None]
  - CARDIOACTIVE DRUG LEVEL ABOVE THERAPEUTIC [None]
  - ARTHRALGIA [None]
  - INSOMNIA [None]
  - ELECTROCARDIOGRAM QT PROLONGED [None]
  - MUSCLE SPASMS [None]
  - ARTHROPATHY [None]
  - GAIT DISTURBANCE [None]
  - PULMONARY VALVE INCOMPETENCE [None]
  - WEIGHT DECREASED [None]
  - CARDIOACTIVE DRUG LEVEL BELOW THERAPEUTIC [None]
  - ELECTROCARDIOGRAM ST-T SEGMENT ABNORMAL [None]
  - DECREASED APPETITE [None]
  - ATRIOVENTRICULAR BLOCK FIRST DEGREE [None]
  - CARDIAC MURMUR [None]
  - ARTHRITIS [None]
  - CACHEXIA [None]
  - PAIN IN EXTREMITY [None]
  - SUBSTANCE ABUSE [None]
  - BACK PAIN [None]
  - RHINITIS [None]
  - SURGERY [None]
  - PALPITATIONS [None]
  - STRESS [None]
  - MITRAL VALVE INCOMPETENCE [None]
